FAERS Safety Report 6088461-6 (Version None)
Quarter: 2009Q1

REPORT INFORMATION
  Report Type: 
  Country: None (occurrence: None)
  Receive Date: 20090224
  Receipt Date: 20090217
  Transmission Date: 20090719
  Serious: Yes (Other)
  Sender: FDA-Public Use
  Company Number: US-CELGENEUS-163-21880-08120456

PATIENT
  Sex: Male

DRUGS (2)
  1. REVLIMID [Suspect]
     Indication: MYELOFIBROSIS
     Route: 048
     Dates: start: 20071105
  2. REVLIMID [Suspect]
     Route: 048
     Dates: start: 20070214, end: 20070801

REACTIONS (3)
  - AMNESIA [None]
  - AORTIC ANEURYSM [None]
  - TREATMENT NONCOMPLIANCE [None]
